FAERS Safety Report 7754285-4 (Version None)
Quarter: 2011Q3

REPORT INFORMATION
  Report Type: 
  Country: None (occurrence: None)
  Receive Date: 20110915
  Receipt Date: 20110909
  Transmission Date: 20111222
  Serious: Yes (Life-Threatening)
  Sender: FDA-Public Use
  Company Number: US-ELI_LILLY_AND_COMPANY-US201109002962

PATIENT
  Sex: Female

DRUGS (2)
  1. NORDITROPIN [Concomitant]
  2. HUMATROPE [Suspect]

REACTIONS (2)
  - PULMONARY HYPERTENSION [None]
  - ASTHMA [None]
